FAERS Safety Report 20055024 (Version 1)
Quarter: 2021Q4

REPORT INFORMATION
  Report Type: Spontaneous
  Country: None (occurrence: US)
  Receive Date: 20211110
  Receipt Date: 20211110
  Transmission Date: 20220303
  Serious: Yes (Death)
  Sender: FDA-Public Use
  Company Number: US-Avion Pharmaceuticals, LLC-2121708

PATIENT
  Age: 14 Year
  Sex: Female

DRUGS (3)
  1. GLOPERBA [Suspect]
     Active Substance: COLCHICINE
     Indication: Suicide attempt
     Route: 048
  2. AMLODIPINE [Concomitant]
     Active Substance: AMLODIPINE BESYLATE
     Route: 065
  3. FENOFIBRATE [Concomitant]
     Active Substance: FENOFIBRATE
     Route: 065

REACTIONS (9)
  - Vomiting [Fatal]
  - Lethargy [Fatal]
  - Somnolence [Fatal]
  - Hypotension [Fatal]
  - Cardiac arrest [Fatal]
  - Aspiration [Fatal]
  - Renal impairment [Fatal]
  - Hepatic function abnormal [Fatal]
  - Death [Fatal]
